FAERS Safety Report 7273477-4 (Version None)
Quarter: 2011Q1

REPORT INFORMATION
  Report Type: 
  Country: None (occurrence: None)
  Receive Date: 20110203
  Receipt Date: 20110125
  Transmission Date: 20110831
  Serious: Yes (Hospitalization)
  Sender: FDA-Public Use
  Company Number: US-ASTRAZENECA-2011SE04504

PATIENT
  Age: 55 Year
  Sex: Female
  Weight: 87.1 kg

DRUGS (4)
  1. LORAZEPAM [Concomitant]
  2. SEROQUEL [Suspect]
     Route: 048
     Dates: start: 20100903, end: 20110122
  3. SEROQUEL [Suspect]
     Indication: SCHIZOPHRENIA
     Route: 048
     Dates: start: 20050101, end: 20100903
  4. SEROQUEL [Suspect]
     Route: 048
     Dates: start: 20110123

REACTIONS (4)
  - MENTAL DISORDER [None]
  - TACHYPHRENIA [None]
  - PARANOIA [None]
  - INSOMNIA [None]
